FAERS Safety Report 8560019 (Version 2)
Quarter: 2014Q2

REPORT INFORMATION
  Report Type: Report from Study
  Country: MX (occurrence: MX)
  Receive Date: 20120514
  Receipt Date: 20140604
  Transmission Date: 20141212
  Serious: No
  Sender: FDA-Public Use
  Company Number: PHHY2012MX038405

PATIENT
  Age: 83 Year
  Sex: Female

DRUGS (3)
  1. EXFORGE HCT [Suspect]
     Indication: HYPERTENSION
     Dosage: 1 DF (160/5/12.5 MG), DAILY
     Dates: start: 200907
  2. EXFORGE HCT [Suspect]
     Dosage: 1.5 DF (160/5/12.5 MG), DAILY
     Dates: start: 200907
  3. TUMS [Concomitant]
     Indication: MINERAL SUPPLEMENTATION
     Dosage: 9 UKN, DAILY
     Dates: start: 201105

REACTIONS (12)
  - Arthropathy [Unknown]
  - Gait disturbance [Unknown]
  - Multi-organ disorder [Not Recovered/Not Resolved]
  - Cardiac disorder [Not Recovered/Not Resolved]
  - Diarrhoea [Not Recovered/Not Resolved]
  - Abdominal discomfort [Not Recovered/Not Resolved]
  - Depression [Not Recovered/Not Resolved]
  - Sleep disorder [Not Recovered/Not Resolved]
  - Pain [Not Recovered/Not Resolved]
  - Malaise [Not Recovered/Not Resolved]
  - Blood pressure increased [Not Recovered/Not Resolved]
  - Wrong technique in drug usage process [Unknown]
